FAERS Safety Report 4971461-4 (Version None)
Quarter: 2006Q2

REPORT INFORMATION
  Report Type: 
  Country: None (occurrence: None)
  Receive Date: 20060413
  Receipt Date: 20060403
  Transmission Date: 20061013
  Serious: Yes (Life-Threatening, Hospitalization, Other)
  Sender: FDA-Public Use
  Company Number: PHFR2006GB01331

PATIENT
  Age: 69 Year
  Sex: Female

DRUGS (8)
  1. DICLOFENAC [Suspect]
     Route: 048
     Dates: end: 20060306
  2. ACETYLSALICYLIC ACID SRT [Suspect]
     Indication: MYOCARDIAL ISCHAEMIA
     Dosage: 75MG/DAY
     Route: 048
     Dates: start: 19960101, end: 20060306
  3. CLOPIDOGREL [Suspect]
     Indication: MYOCARDIAL ISCHAEMIA
     Dosage: 75MG/DAY
     Route: 065
     Dates: end: 20060306
  4. ENOXAPARIN SODIUM [Suspect]
     Route: 065
  5. ATENOLOL [Concomitant]
     Indication: MYOCARDIAL ISCHAEMIA
     Dosage: 25 MG, BID
     Route: 048
  6. SIMVASTATIN [Concomitant]
     Indication: BLOOD CHOLESTEROL INCREASED
     Dosage: 20MG NOCTE
     Route: 048
  7. CO-DYDRAMOL [Concomitant]
     Indication: PAIN
     Route: 048
  8. AMOXICILLIN + CLAVULANATE POTASSIUM [Concomitant]
     Indication: INFECTION
     Route: 065

REACTIONS (9)
  - ABDOMINAL PAIN [None]
  - CHEST X-RAY ABNORMAL [None]
  - DUODENAL ULCER PERFORATION [None]
  - GASTROINTESTINAL HAEMORRHAGE [None]
  - GASTROINTESTINAL PERFORATION [None]
  - LIFE SUPPORT [None]
  - PERFORATED DUODENAL ULCER REPAIR [None]
  - SEDATION [None]
  - SHOULDER PAIN [None]
